FAERS Safety Report 5133525-4 (Version None)
Quarter: 2006Q4

REPORT INFORMATION
  Report Type: 
  Country: None (occurrence: None)
  Receive Date: 20061024
  Receipt Date: 20050607
  Transmission Date: 20070319
  Serious: No
  Sender: FDA-Public Use
  Company Number: US-BRISTOL-MYERS SQUIBB COMPANY-12996377

PATIENT
  Age: 7 Month
  Sex: Male
  Weight: 11 kg

DRUGS (1)
  1. TRIMOX [Suspect]
     Dosage: ^THE PATIENT WAS RECEIVING 1/5 ML DILUTED WITH 2-4 OZ OF MILK^
     Route: 048

REACTIONS (1)
  - DIARRHOEA [None]
